FAERS Safety Report 7334830-3 (Version None)
Quarter: 2011Q1

REPORT INFORMATION
  Report Type: 
  Country: None (occurrence: None)
  Receive Date: 20110201
  Receipt Date: 20110201
  Transmission Date: 20110831
  Serious: Yes (Hospitalization)
  Sender: FDA-Public Use
  Company Number: None

PATIENT
  Age: 55 Year
  Sex: Male
  Weight: 127.9144 kg

DRUGS (1)
  1. ONGLYZA [Suspect]
     Indication: BLOOD PRESSURE MANAGEMENT
     Dates: start: 20110201, end: 20110224

REACTIONS (9)
  - OEDEMA PERIPHERAL [None]
  - ECONOMIC PROBLEM [None]
  - RASH [None]
  - HEART RATE INCREASED [None]
  - BLOOD PRESSURE SYSTOLIC INCREASED [None]
  - BLOOD GLUCOSE INCREASED [None]
  - DRUG HYPERSENSITIVITY [None]
  - SWELLING FACE [None]
  - RESPIRATORY RATE INCREASED [None]
